FAERS Safety Report 4422400-6 (Version None)
Quarter: 2004Q3

REPORT INFORMATION
  Report Type: 
  Country: None (occurrence: None)
  Receive Date: 20040806
  Receipt Date: 20040722
  Transmission Date: 20050211
  Serious: Yes (Death)
  Sender: FDA-Public Use
  Company Number: T02-USA-00021-01

PATIENT
  Age: 0 Day
  Sex: Male
  Weight: 0.47 kg

DRUGS (8)
  1. INFASURF PRESERVATIVE FREE [Suspect]
     Indication: ACUTE RESPIRATORY DISTRESS SYNDROME
  2. SURVANTA [Suspect]
     Indication: ACUTE RESPIRATORY DISTRESS SYNDROME
     Dosage: 2 TRACH
     Dates: start: 20011230, end: 20011231
  3. ALBUMIN ^BEHRING^ (ALBUMIN NORMAL HUMAN SERUM) [Concomitant]
  4. AQUAPHOR [Concomitant]
  5. VITAMIN K TAB [Concomitant]
  6. VITAMIN A [Concomitant]
  7. PRBCS (RED BLOOD CELLS) [Concomitant]
  8. INDOMETHACIN 25MG CAP [Concomitant]

REACTIONS (19)
  - ANAEMIA NEONATAL [None]
  - ELECTROLYTE IMBALANCE [None]
  - GENERAL PHYSICAL HEALTH DETERIORATION [None]
  - HEART RATE DECREASED [None]
  - HYPERGLYCAEMIA [None]
  - HYPERNATRAEMIA [None]
  - HYPOKINESIA [None]
  - JAUNDICE NEONATAL [None]
  - LABILE BLOOD PRESSURE [None]
  - METABOLIC ACIDOSIS [None]
  - NEONATAL DISORDER [None]
  - NEONATAL HYPOTENSION [None]
  - NEONATAL RESPIRATORY FAILURE [None]
  - NEUTROPENIA NEONATAL [None]
  - OXYGEN SATURATION DECREASED [None]
  - PNEUMOMEDIASTINUM [None]
  - PULMONARY HAEMORRHAGE [None]
  - SEPSIS NEONATAL [None]
  - SKIN DISCOLOURATION [None]
